FAERS Safety Report 5117169-6 (Version None)
Quarter: 2006Q3

REPORT INFORMATION
  Report Type: 
  Country: None (occurrence: None)
  Receive Date: 20060927
  Receipt Date: 20060927
  Transmission Date: 20061208
  Serious: Yes (Hospitalization)
  Sender: FDA-Public Use
  Company Number: None

PATIENT
  Age: 47 Year
  Sex: Male
  Weight: 145 kg

DRUGS (1)
  1. LITHIUM [Suspect]
     Indication: BIPOLAR DISORDER
     Dosage: 1200MG QHS PO
     Route: 048

REACTIONS (3)
  - DRUG TOXICITY [None]
  - MENTAL STATUS CHANGES [None]
  - RENAL FAILURE [None]
